FAERS Safety Report 16984929 (Version 2)
Quarter: 2019Q4

REPORT INFORMATION
  Report Type: Spontaneous
  Country: US (occurrence: US)
  Receive Date: 20191101
  Receipt Date: 20191121
  Transmission Date: 20200122
  Serious: Yes (Hospitalization, Other)
  Sender: FDA-Public Use
  Company Number: US-ALLERGAN-1943567US

PATIENT
  Sex: Male

DRUGS (5)
  1. BYSTOLIC [Suspect]
     Active Substance: NEBIVOLOL HYDROCHLORIDE
     Indication: HEART RATE INCREASED
  2. CIALIS [Suspect]
     Active Substance: TADALAFIL
     Indication: BENIGN PROSTATIC HYPERPLASIA
     Route: 065
  3. ASPIRIN. [Concomitant]
     Active Substance: ASPIRIN
  4. BYSTOLIC [Suspect]
     Active Substance: NEBIVOLOL HYDROCHLORIDE
     Indication: BLOOD PRESSURE INCREASED
     Dosage: 2.5 MG, QD
     Route: 048
     Dates: start: 2009, end: 20190125
  5. CENTRUM SILVER [Concomitant]
     Active Substance: MINERALS\VITAMINS

REACTIONS (3)
  - Tinnitus [Recovering/Resolving]
  - Deafness [Not Recovered/Not Resolved]
  - Vertigo [Unknown]

NARRATIVE: CASE EVENT DATE: 20190125
